FAERS Safety Report 25628759 (Version 1)
Quarter: 2025Q3

REPORT INFORMATION
  Report Type: Spontaneous
  Country: US (occurrence: US)
  Receive Date: 20250731
  Receipt Date: 20250731
  Transmission Date: 20251020
  Serious: No
  Sender: Tarsus Pharmaceuticals
  Company Number: US-TARSUS PHARMACEUTICALS-TSP-US-2025-000593

PATIENT

DRUGS (2)
  1. XDEMVY [Suspect]
     Active Substance: LOTILANER
     Indication: Ocular demodicosis
     Dosage: 1 GTT DROPS, BID (ONE DROP PER EYE TWICE DAILY DURING 6 WEEKS)
     Route: 047
     Dates: start: 20250610, end: 20250616
  2. ESTRADIOL [Concomitant]
     Active Substance: ESTRADIOL
     Indication: Menopause
     Dosage: 2 MILLIGRAM, QD
     Route: 065

REACTIONS (11)
  - Erythema [Not Recovered/Not Resolved]
  - Eye pain [Not Recovered/Not Resolved]
  - Swelling face [Not Recovered/Not Resolved]
  - Eye swelling [Not Recovered/Not Resolved]
  - Eye irritation [Not Recovered/Not Resolved]
  - Skin burning sensation [Not Recovered/Not Resolved]
  - Pain of skin [Not Recovered/Not Resolved]
  - Skin erosion [Not Recovered/Not Resolved]
  - Feeling hot [Not Recovered/Not Resolved]
  - Exposure via skin contact [Unknown]
  - Accidental exposure to product [Unknown]

NARRATIVE: CASE EVENT DATE: 20250601
